FAERS Safety Report 6229901-9 (Version None)
Quarter: 2009Q2

REPORT INFORMATION
  Report Type: 
  Country: None (occurrence: None)
  Receive Date: 20090615
  Receipt Date: 20090401
  Transmission Date: 20091009
  Serious: Yes (Hospitalization)
  Sender: FDA-Public Use
  Company Number: TR-ELI_LILLY_AND_COMPANY-TR200906002558

PATIENT
  Sex: Female

DRUGS (3)
  1. HUMALOG MIX 75/25 [Suspect]
     Indication: DIABETES MELLITUS
     Dosage: 18 IU, 2/D
     Route: 058
     Dates: start: 20070101
  2. LEVOTIRON [Concomitant]
     Indication: GOITRE
     Dosage: UNK, DAILY (1/D)
  3. PAXIL [Concomitant]
     Indication: ANTIDEPRESSANT THERAPY

REACTIONS (3)
  - MOVEMENT DISORDER [None]
  - PRURITUS [None]
  - WOUND [None]
